FAERS Safety Report 19788543 (Version 4)
Quarter: 2022Q1

REPORT INFORMATION
  Report Type: Spontaneous
  Country: BE (occurrence: BE)
  Receive Date: 20210903
  Receipt Date: 20220308
  Transmission Date: 20220423
  Serious: Yes (Hospitalization)
  Sender: FDA-Public Use
  Company Number: BE-ACCORD-236316

PATIENT
  Age: 63 Year
  Sex: Male
  Weight: 79 kg

DRUGS (44)
  1. RITUXIMAB [Suspect]
     Active Substance: RITUXIMAB
     Indication: Product used for unknown indication
     Dosage: 1Q3W (CYCLE 1-3)
     Route: 041
     Dates: start: 20210804
  2. CARBOPLATIN [Suspect]
     Active Substance: CARBOPLATIN
     Indication: Product used for unknown indication
     Dosage: 1Q3W (CYCLE 1-3)
     Route: 042
     Dates: start: 20210804
  3. EPCORITAMAB [Suspect]
     Active Substance: EPCORITAMAB
     Indication: Product used for unknown indication
     Dosage: INTERMEDIATE DOSE
     Route: 058
     Dates: start: 20210811
  4. EPCORITAMAB [Suspect]
     Active Substance: EPCORITAMAB
     Dosage: PRIMING DOSE, SINGLE
     Route: 058
     Dates: start: 20210804, end: 20210804
  5. DEXAMETHASONE [Suspect]
     Active Substance: DEXAMETHASONE
     Indication: Product used for unknown indication
     Dosage: DAY 1-4 OF EACH 21-DAY CYCLE (CYCLE 1-3)
     Route: 042
     Dates: start: 20210804, end: 20210807
  6. CYTARABINE [Suspect]
     Active Substance: CYTARABINE
     Indication: Product used for unknown indication
     Dosage: 1Q3W (CYCLE 1-3)
     Route: 042
     Dates: start: 20210804, end: 20210804
  7. CYTARABINE [Suspect]
     Active Substance: CYTARABINE
     Dosage: 1Q3W (CYCLE 1-3)
     Route: 042
     Dates: start: 20210805, end: 20210805
  8. OXALIPLATIN [Suspect]
     Active Substance: OXALIPLATIN
     Indication: Product used for unknown indication
     Dosage: 1Q3W (CYCLE 1-3)
     Route: 042
  9. LORAZEPAM [Concomitant]
     Active Substance: LORAZEPAM
     Dates: start: 20210804, end: 20210804
  10. LIPEGFILGRASTIM [Concomitant]
     Active Substance: LIPEGFILGRASTIM
     Dates: start: 20210805, end: 20210805
  11. XANAX [Concomitant]
     Active Substance: ALPRAZOLAM
     Dates: start: 20210728, end: 20210728
  12. AMITRIPTYLINE HYDROCHLORIDE [Concomitant]
     Active Substance: AMITRIPTYLINE HYDROCHLORIDE
     Dates: start: 20210729, end: 20210927
  13. HYALURONATE SODIUM\TREHALOSE [Concomitant]
     Active Substance: HYALURONATE SODIUM\TREHALOSE
     Dates: start: 20210804
  14. ACETAMINOPHEN [Concomitant]
     Active Substance: ACETAMINOPHEN
     Dates: start: 20210804, end: 20210804
  15. DAFALGAN [Concomitant]
     Active Substance: ACETAMINOPHEN
     Dates: start: 20210718, end: 20210804
  16. MOXONIDINE [Concomitant]
     Active Substance: MOXONIDINE
     Dates: start: 20210719, end: 20210827
  17. OMEPRAZOLE [Concomitant]
     Active Substance: OMEPRAZOLE
     Dates: start: 20210719
  18. FEBUXOSTAT [Concomitant]
     Active Substance: FEBUXOSTAT
     Dates: start: 20201004
  19. FASTURTEC [Concomitant]
     Active Substance: RASBURICASE
     Dates: start: 20210807, end: 20210812
  20. FASTURTEC [Concomitant]
     Active Substance: RASBURICASE
     Dates: start: 20210804
  21. ONDANSETRON [Concomitant]
     Active Substance: ONDANSETRON
     Dates: start: 20210804
  22. ENOXAPARIN SODIUM [Concomitant]
     Active Substance: ENOXAPARIN SODIUM
     Dates: start: 20210719, end: 20210729
  23. MOVICOL [Concomitant]
     Active Substance: POLYETHYLENE GLYCOL 3350\POTASSIUM CHLORIDE\SODIUM BICARBONATE\SODIUM CHLORIDE
     Dates: start: 20210810
  24. XALATAN [Concomitant]
     Active Substance: LATANOPROST
     Dates: start: 20210718
  25. FLUCONAZOLE [Concomitant]
     Active Substance: FLUCONAZOLE
     Dates: start: 20210804
  26. HUMULINE [Concomitant]
     Dates: start: 20210805, end: 20210809
  27. DEXERYL (BELGIUM) [Concomitant]
     Dates: start: 20210810, end: 20210813
  28. FILGRASTIM [Concomitant]
     Active Substance: FILGRASTIM
     Dates: start: 20210726, end: 20210804
  29. LATANOPROST [Concomitant]
     Active Substance: LATANOPROST
     Dates: start: 20210719, end: 20210916
  30. IBUPROFEN [Concomitant]
     Active Substance: IBUPROFEN
     Dates: start: 20210712, end: 20210714
  31. CHOLECALCIFEROL [Concomitant]
     Active Substance: CHOLECALCIFEROL
     Dates: start: 20210718
  32. ESOMEPRAZOLE [Concomitant]
     Active Substance: ESOMEPRAZOLE
     Dates: start: 20210718
  33. BUMETANIDE [Concomitant]
     Active Substance: BUMETANIDE
     Dates: start: 20210806, end: 20210808
  34. BACTRIM [Concomitant]
     Active Substance: SULFAMETHOXAZOLE\TRIMETHOPRIM
     Dates: start: 20210718
  35. ACYCLOVIR [Concomitant]
     Active Substance: ACYCLOVIR
     Dates: start: 20210621
  36. COLCHICINE [Concomitant]
     Active Substance: COLCHICINE
     Dates: start: 20210712, end: 20210804
  37. DEXAMETHASONE SODIUM PHOSPHATE [Concomitant]
     Active Substance: DEXAMETHASONE SODIUM PHOSPHATE
     Dates: start: 20210804
  38. LASIX [Concomitant]
     Active Substance: FUROSEMIDE
     Dates: start: 20210805, end: 20210811
  39. VITAMIN A PALMITATE [Concomitant]
     Active Substance: VITAMIN A PALMITATE
     Dates: start: 20210805
  40. TRAMADOL HYDROCHLORIDE [Concomitant]
     Active Substance: TRAMADOL HYDROCHLORIDE
     Dates: start: 20210718
  41. ALIZAPRIDE HYDROCHLORIDE [Concomitant]
     Active Substance: ALIZAPRIDE HYDROCHLORIDE
     Dates: start: 20210804, end: 20210804
  42. AUGMENTIN [Concomitant]
     Active Substance: AMOXICILLIN\CLAVULANATE POTASSIUM
     Dates: start: 20210712, end: 20210722
  43. CLEMASTINE FUMARATE [Concomitant]
     Active Substance: CLEMASTINE FUMARATE
     Dates: start: 20210804, end: 20210804
  44. ZOFRAN [Concomitant]
     Active Substance: ONDANSETRON HYDROCHLORIDE
     Dates: start: 20210808, end: 20210810

REACTIONS (3)
  - Condition aggravated [Recovered/Resolved]
  - Acute kidney injury [Recovered/Resolved]
  - Tumour lysis syndrome [Not Recovered/Not Resolved]

NARRATIVE: CASE EVENT DATE: 20210807
